FAERS Safety Report 8369003-9 (Version None)
Quarter: 2012Q2

REPORT INFORMATION
  Report Type: 
  Country: None (occurrence: None)
  Receive Date: 20120516
  Receipt Date: 20120502
  Transmission Date: 20120825
  Serious: Yes (Death, Other)
  Sender: FDA-Public Use
  Company Number: 1170895

PATIENT
  Age: 39 Year
  Sex: Male
  Weight: 34.4734 kg

DRUGS (4)
  1. CORTICOSTEROID NOS [Concomitant]
  2. BECLOMETHASONE DIPROPIONATE [Concomitant]
  3. CAPECITABINE [Suspect]
     Indication: ADENOCARCINOMA
     Dosage: UNKNOWN, ORAL
     Route: 048
     Dates: start: 20110809
  4. OXALIPLATIN [Suspect]
     Indication: ADENOCARCINOMA
     Dosage: UNKNOWN, INTRAVENOUS
     Route: 042
     Dates: start: 20110809

REACTIONS (7)
  - FEELING ABNORMAL [None]
  - DISEASE PROGRESSION [None]
  - DISEASE COMPLICATION [None]
  - ARRHYTHMIA [None]
  - SYNCOPE [None]
  - PALPITATIONS [None]
  - ADENOCARCINOMA [None]
